FAERS Safety Report 11720426 (Version 1)
Quarter: 2015Q4

REPORT INFORMATION
  Report Type: Spontaneous
  Country: GB (occurrence: GB)
  Receive Date: 20151110
  Receipt Date: 20151110
  Transmission Date: 20160304
  Serious: Yes (Other)
  Sender: FDA-Public Use
  Company Number: GB-PFIZER INC-2015375455

PATIENT
  Age: 44 Year
  Sex: Female
  Weight: 57 kg

DRUGS (6)
  1. FAMOTIDINE. [Concomitant]
     Active Substance: FAMOTIDINE
     Dosage: 1-2 PER DAY
     Dates: start: 20151005
  2. MOMETASONE [Concomitant]
     Active Substance: MOMETASONE
     Dosage: 2 DF, 2X/DAY WEAN DOWN EACH MONTH
     Dates: start: 20140410
  3. TRAMADOL. [Concomitant]
     Active Substance: TRAMADOL
     Dosage: 1 OR 2 AS DIRECTED
     Dates: start: 20151008, end: 20151015
  4. CLINDAMYCIN [Concomitant]
     Active Substance: CLINDAMYCIN\CLINDAMYCIN PHOSPHATE
     Dosage: 1 DF, 1X/DAY
     Dates: start: 20150813, end: 20151012
  5. HYDROCORTISONE. [Concomitant]
     Active Substance: HYDROCORTISONE
     Dosage: 1 DF, 2X/DAY APPLY SPARINGLY
     Dates: start: 20150928
  6. SERTRALINE HCL [Suspect]
     Active Substance: SERTRALINE HYDROCHLORIDE
     Dosage: UNK
     Dates: start: 20151008

REACTIONS (4)
  - Depression [Recovered/Resolved]
  - Mood altered [Recovered/Resolved]
  - Condition aggravated [Recovered/Resolved]
  - Disturbance in attention [Recovered/Resolved]

NARRATIVE: CASE EVENT DATE: 20151021
